FAERS Safety Report 11988086 (Version 1)
Quarter: 2016Q1

REPORT INFORMATION
  Report Type: Spontaneous
  Country: US (occurrence: None)
  Receive Date: 20160201
  Receipt Date: 20160201
  Transmission Date: 20160526
  Serious: Yes (Disabling)
  Sender: FDA-Public Use
  Company Number: None

PATIENT
  Age: 34 Year
  Sex: Female
  Weight: 71.22 kg

DRUGS (3)
  1. SUBOXONE [Suspect]
     Active Substance: BUPRENORPHINE HYDROCHLORIDE\NALOXONE HYDROCHLORIDE
     Indication: DRUG DEPENDENCE
     Dosage: 1STRIP A DAY  ONCE DAILY TAKEN UNDER THE TONGUE
     Route: 060
     Dates: start: 20160120, end: 20160130
  2. PREMARIN [Concomitant]
     Active Substance: ESTROGENS, CONJUGATED
  3. GABAPENTIN. [Concomitant]
     Active Substance: GABAPENTIN

REACTIONS (6)
  - Aphthous ulcer [None]
  - Lip swelling [None]
  - Oral discomfort [None]
  - Hypophagia [None]
  - Pain [None]
  - Drooling [None]

NARRATIVE: CASE EVENT DATE: 20160130
